FAERS Safety Report 7319080-9 (Version None)
Quarter: 2011Q1

REPORT INFORMATION
  Report Type: 
  Country: None (occurrence: None)
  Receive Date: 20110228
  Receipt Date: 20101206
  Transmission Date: 20110831
  Serious: Yes (Hospitalization, Other)
  Sender: FDA-Public Use
  Company Number: US-BAYER-201017543NA

PATIENT
  Sex: Female
  Weight: 63.039 kg

DRUGS (1)
  1. MIRENA [Suspect]
     Indication: CONTRACEPTION
     Dosage: FREQUENCY: CONTINUOUS
     Route: 015
     Dates: start: 20080125

REACTIONS (3)
  - PRODUCT SHAPE ISSUE [None]
  - DEVICE DISLOCATION [None]
  - DEVICE BREAKAGE [None]
